FAERS Safety Report 26192777 (Version 1)
Quarter: 2025Q4

REPORT INFORMATION
  Report Type: Spontaneous
  Country: US (occurrence: US)
  Receive Date: 20251223
  Receipt Date: 20251223
  Transmission Date: 20260118
  Serious: No
  Sender: DR REDDYS
  Company Number: US-MLMSERVICE-20251126-PI727646-00201-3

PATIENT
  Age: 3 Decade
  Sex: Male

DRUGS (3)
  1. IBUPROFEN [Suspect]
     Active Substance: IBUPROFEN
     Indication: Pruritus
     Route: 048
  2. LIDOCAINE [Suspect]
     Active Substance: LIDOCAINE
     Indication: Pruritus
     Route: 061
  3. ALOE VERA LEAF [Suspect]
     Active Substance: ALOE VERA LEAF
     Indication: Pruritus
     Route: 065

REACTIONS (1)
  - Pruritus [Recovered/Resolved]
